FAERS Safety Report 6783371-0 (Version None)
Quarter: 2010Q2

REPORT INFORMATION
  Report Type: 
  Country: None (occurrence: None)
  Receive Date: 20100617
  Receipt Date: 20100609
  Transmission Date: 20101027
  Serious: Yes (Other)
  Sender: FDA-Public Use
  Company Number: 013652

PATIENT
  Sex: Female
  Weight: 52 kg

DRUGS (7)
  1. CIMZIA [Suspect]
     Indication: RHEUMATOID ARTHRITIS
     Dosage: (400 MG 1X/4 WEEKS SUBCUTANEOUS)
     Route: 058
     Dates: start: 20100329
  2. METHOTREXATE [Concomitant]
  3. PREDNISONE [Concomitant]
  4. OXYCONTIN [Concomitant]
  5. LYRICA [Concomitant]
  6. CELEBREX [Concomitant]
  7. NORTRIPTYLINE [Concomitant]

REACTIONS (2)
  - FOREIGN TRAVEL [None]
  - INFECTION [None]
